FAERS Safety Report 6170254-2 (Version None)
Quarter: 2009Q2

REPORT INFORMATION
  Report Type: 
  Country: None (occurrence: None)
  Receive Date: 20090427
  Receipt Date: 20090427
  Transmission Date: 20091009
  Serious: Yes (Life-Threatening, Disabling)
  Sender: FDA-Public Use
  Company Number: None

PATIENT
  Age: 61 Year
  Sex: Female
  Weight: 68.9467 kg

DRUGS (1)
  1. ACTOS [Suspect]
     Indication: GLUCOSE TOLERANCE IMPAIRED
     Dosage: 30 MG 1 PER DAY
     Dates: start: 20060601, end: 20090101

REACTIONS (4)
  - CARDIAC DISORDER [None]
  - FLUID RETENTION [None]
  - MYOCARDIAL INFARCTION [None]
  - PULMONARY CONGESTION [None]
